FAERS Safety Report 8860464 (Version 1)
Quarter: 2012Q4

REPORT INFORMATION
  Report Type: 
  Country: US (occurrence: US)
  Receive Date: 20121025
  Receipt Date: 20121025
  Transmission Date: 20130627
  Serious: No
  Sender: FDA-Public Use
  Company Number: US-009507513-1208USA010835

PATIENT

DRUGS (3)
  1. VICTRELIS [Suspect]
     Dosage: 200 mg, 4 caps
     Route: 048
  2. CETAPHIL MOISTURIZING CREAM [Concomitant]
  3. ADVIL [Concomitant]
     Dosage: 200 mg, UNK

REACTIONS (1)
  - Dry skin [Unknown]
